FAERS Safety Report 8572207-3 (Version None)
Quarter: 2012Q3

REPORT INFORMATION
  Report Type: 
  Country: None (occurrence: None)
  Receive Date: 20120806
  Receipt Date: 20120727
  Transmission Date: 20120928
  Serious: Yes (Hospitalization)
  Sender: FDA-Public Use
  Company Number: US-ASTELLAS-2012US006525

PATIENT
  Sex: Female
  Weight: 88 kg

DRUGS (3)
  1. PROGRAF [Suspect]
     Indication: ACUTE LYMPHOCYTIC LEUKAEMIA
     Dosage: 2.5 MG, BID
     Route: 048
     Dates: start: 20110401
  2. PROGRAF [Suspect]
     Indication: STEM CELL TRANSPLANT
  3. PROGRAF [Suspect]
     Indication: BONE MARROW TRANSPLANT

REACTIONS (5)
  - LABORATORY TEST ABNORMAL [None]
  - CONFUSIONAL STATE [None]
  - PYREXIA [None]
  - ASTHENIA [None]
  - OFF LABEL USE [None]
